FAERS Safety Report 7308195-7 (Version None)
Quarter: 2011Q1

REPORT INFORMATION
  Report Type: 
  Country: None (occurrence: None)
  Receive Date: 20110223
  Receipt Date: 20110221
  Transmission Date: 20110831
  Serious: Yes (Hospitalization)
  Sender: FDA-Public Use
  Company Number: US-BRISTOL-MYERS SQUIBB COMPANY-15545346

PATIENT
  Age: 79 Year
  Sex: Female
  Weight: 59 kg

DRUGS (6)
  1. ERBITUX [Suspect]
     Indication: NON-SMALL CELL LUNG CANCER
     Dosage: LAST DOSE ON 08FEB2011.LAST DOSE ON 08FEB2011
     Dates: start: 20101115
  2. CARBOPLATIN [Suspect]
     Indication: NON-SMALL CELL LUNG CANCER
     Dosage: LAST DOSE ON 24JAN2011. LAST DOSE ON 24JAN2011
     Dates: start: 20101115
  3. TAXOL [Suspect]
     Indication: NON-SMALL CELL LUNG CANCER
     Dosage: LAST DOSE ON 24JAN2011.LAST DOSE ON 24JAN2011
     Dates: start: 20101115
  4. NORVASC [Concomitant]
  5. HYDROCHLOROTHIAZIDE [Concomitant]
  6. ATENOLOL [Concomitant]

REACTIONS (4)
  - SYNCOPE [None]
  - HYPOMAGNESAEMIA [None]
  - OESOPHAGITIS [None]
  - HYPOKALAEMIA [None]
